FAERS Safety Report 6818829-9 (Version None)
Quarter: 2010Q2

REPORT INFORMATION
  Report Type: 
  Country: None (occurrence: None)
  Receive Date: 20100630
  Receipt Date: 20100615
  Transmission Date: 20101027
  Serious: Yes (Other)
  Sender: FDA-Public Use
  Company Number: SG-JNJFOC-20100600411

PATIENT
  Age: 30 Year
  Sex: Female

DRUGS (1)
  1. DECITABINE (DECITABINE) LYOPHILIZED POWDER [Suspect]
     Indication: MYELODYSPLASTIC SYNDROME
     Dosage: 20 MG/M2, 1 IN 1 DAY, INTRAVENOUS
     Route: 042

REACTIONS (8)
  - CELLULITIS [None]
  - FEBRILE NEUTROPENIA [None]
  - FOLLICULITIS [None]
  - HIDRADENITIS [None]
  - PAIN [None]
  - RASH [None]
  - SKIN NODULE [None]
  - WHITE BLOOD CELL COUNT DECREASED [None]
